FAERS Safety Report 13620053 (Version 1)
Quarter: 2017Q2

REPORT INFORMATION
  Report Type: Spontaneous
  Country: GB (occurrence: GB)
  Receive Date: 20170607
  Receipt Date: 20170607
  Transmission Date: 20170830
  Serious: Yes (Other)
  Sender: FDA-Public Use
  Company Number: PHFR2017GB004102

PATIENT
  Age: 23 Year
  Sex: Female

DRUGS (1)
  1. SALBUTAMOL [Suspect]
     Active Substance: ALBUTEROL
     Indication: PRODUCT USED FOR UNKNOWN INDICATION
     Dosage: STRENGTH: 200 MCG
     Route: 055

REACTIONS (5)
  - Dyspnoea [Unknown]
  - Product quality issue [Unknown]
  - Device malfunction [Unknown]
  - Intentional product use issue [Unknown]
  - Drug ineffective [Unknown]
